FAERS Safety Report 5723391-8 (Version None)
Quarter: 2008Q2

REPORT INFORMATION
  Report Type: 
  Country: None (occurrence: None)
  Receive Date: 20080430
  Receipt Date: 20080410
  Transmission Date: 20081010
  Serious: Yes (Death, Hospitalization)
  Sender: FDA-Public Use
  Company Number: US-GENENTECH-234817

PATIENT
  Sex: Female

DRUGS (6)
  1. BEVACIZUMAB [Suspect]
     Indication: COLON CANCER
     Dosage: 5 MG/KG, Q2W
     Route: 042
     Dates: start: 20060130
  2. OXALIPLATIN [Suspect]
     Indication: COLON CANCER
     Dosage: 85 MG/M2, Q2W
     Route: 042
     Dates: start: 20060130
  3. FLUOROURACIL [Suspect]
     Indication: COLON CANCER
     Dosage: 400 MG/M2, SINGLE
     Route: 040
     Dates: start: 20060130
  4. FLUOROURACIL [Suspect]
     Dosage: 2400 MG/M2, UNK
     Dates: start: 20060405
  5. LEUCOVORIN CALCIUM [Suspect]
     Indication: COLON CANCER
     Dosage: 400 MG/M2, Q2W
     Route: 040
     Dates: start: 20060130
  6. LEUCOVORIN CALCIUM [Suspect]
     Dosage: 2400 MG/M2, Q2W
     Route: 042
     Dates: start: 20060130

REACTIONS (4)
  - DEATH [None]
  - GASTROINTESTINAL PERFORATION [None]
  - HYPERKALAEMIA [None]
  - HYPOPHOSPHATAEMIA [None]
